FAERS Safety Report 7828492-6 (Version None)
Quarter: 2011Q4

REPORT INFORMATION
  Report Type: 
  Country: None (occurrence: None)
  Receive Date: 20111020
  Receipt Date: 20111014
  Transmission Date: 20120403
  Serious: Yes (Hospitalization)
  Sender: FDA-Public Use
  Company Number: US-ABBOTT-11P-163-0865191-00

PATIENT
  Age: 21 Year
  Sex: Female

DRUGS (3)
  1. HUMIRA [Suspect]
     Dosage: LOADING DOSE
     Dates: start: 20111004, end: 20111004
  2. ALBUTEROL [Concomitant]
     Indication: ASTHMA
  3. HUMIRA [Suspect]
     Indication: CROHN'S DISEASE
     Dates: start: 20101201, end: 20101201

REACTIONS (8)
  - INTESTINAL OBSTRUCTION [None]
  - SINUSITIS [None]
  - INCREASED UPPER AIRWAY SECRETION [None]
  - ARTHRALGIA [None]
  - PAIN IN EXTREMITY [None]
  - RHINORRHOEA [None]
  - BACK PAIN [None]
  - DRUG INEFFECTIVE [None]
